FAERS Safety Report 4869844-6 (Version None)
Quarter: 2005Q4

REPORT INFORMATION
  Report Type: 
  Country: None (occurrence: None)
  Receive Date: 20051230
  Receipt Date: 20051219
  Transmission Date: 20060501
  Serious: Yes (Other)
  Sender: FDA-Public Use
  Company Number: US-MERCK-0512USA03194

PATIENT
  Age: 53 Year
  Sex: Male
  Weight: 122 kg

DRUGS (15)
  1. ZOCOR [Suspect]
     Route: 048
     Dates: end: 20051107
  2. BYETTA [Suspect]
     Indication: DIABETES MELLITUS NON-INSULIN-DEPENDENT
     Route: 051
     Dates: start: 20050901, end: 20051001
  3. BYETTA [Suspect]
     Route: 051
     Dates: start: 20051001
  4. LOTENSIN [Concomitant]
     Route: 065
  5. GLUCOPHAGE [Concomitant]
     Route: 065
  6. GLUCOPHAGE [Concomitant]
     Route: 065
  7. ASPIRIN [Concomitant]
     Route: 065
  8. VIAGRA [Concomitant]
     Route: 065
  9. VIAGRA [Concomitant]
     Route: 065
  10. VIAGRA [Concomitant]
     Route: 065
  11. ADVIL [Concomitant]
     Route: 065
  12. VITAMINS (UNSPECIFIED) [Concomitant]
     Route: 065
  13. VITAMINS (UNSPECIFIED) [Concomitant]
     Route: 065
  14. HYDRODIURIL [Suspect]
     Route: 048
     Dates: start: 20050907, end: 20051107
  15. GLUCOTROL XL [Suspect]
     Indication: DIABETES MELLITUS NON-INSULIN-DEPENDENT
     Route: 048
     Dates: end: 20051107

REACTIONS (2)
  - PANCREATITIS [None]
  - WEIGHT DECREASED [None]
